FAERS Safety Report 5446133-2 (Version None)
Quarter: 2007Q3

REPORT INFORMATION
  Report Type: 
  Country: None (occurrence: None)
  Receive Date: 20070907
  Receipt Date: 20070823
  Transmission Date: 20080115
  Serious: Yes (Hospitalization)
  Sender: FDA-Public Use
  Company Number: ES-ELI_LILLY_AND_COMPANY-ES200708005239

PATIENT
  Age: 69 Year
  Sex: Female

DRUGS (5)
  1. FORTEO [Suspect]
     Indication: OSTEOPOROSIS
     Dosage: 20 UG, UNK
     Route: 058
     Dates: start: 20070727
  2. PROZAC [Suspect]
     Indication: DEPRESSION
  3. FOLI-DOCE [Concomitant]
  4. DEXNON [Concomitant]
  5. TRANXILIUM [Concomitant]

REACTIONS (2)
  - DECREASED APPETITE [None]
  - DEHYDRATION [None]
